FAERS Safety Report 6341137-X (Version None)
Quarter: 2009Q3

REPORT INFORMATION
  Report Type: 
  Country: None (occurrence: None)
  Receive Date: 20090904
  Receipt Date: 20090205
  Transmission Date: 20100115
  Serious: No
  Sender: FDA-Public Use
  Company Number: A0767144A

PATIENT
  Age: 86 Year
  Sex: Female

DRUGS (5)
  1. REQUIP XL [Suspect]
     Indication: PARKINSON'S DISEASE
     Dosage: 2MG PER DAY
     Route: 048
     Dates: start: 20090203
  2. GLUCOTROL [Concomitant]
  3. LASIX [Concomitant]
  4. NEXIUM [Concomitant]
  5. OTHER MEDICATIONS [Concomitant]

REACTIONS (2)
  - CONSTIPATION [None]
  - FATIGUE [None]
